FAERS Safety Report 5098940-6 (Version None)
Quarter: 2006Q3

REPORT INFORMATION
  Report Type: 
  Country: None (occurrence: None)
  Receive Date: 20060907
  Receipt Date: 20060828
  Transmission Date: 20061208
  Serious: Yes (Other)
  Sender: FDA-Public Use
  Company Number: 2006UW17010

PATIENT
  Sex: Female

DRUGS (4)
  1. SEROQUEL [Suspect]
     Indication: POSTPARTUM DEPRESSION
     Route: 048
     Dates: start: 20050801, end: 20050901
  2. SEROQUEL [Suspect]
     Indication: INSOMNIA
     Route: 048
     Dates: start: 20050801, end: 20050901
  3. SEROQUEL [Suspect]
     Route: 048
     Dates: start: 20060101
  4. SEROQUEL [Suspect]
     Route: 048
     Dates: start: 20060101

REACTIONS (4)
  - FEELING DRUNK [None]
  - MALAISE [None]
  - SUICIDAL IDEATION [None]
  - VOMITING [None]
